FAERS Safety Report 5857108-3 (Version None)
Quarter: 2008Q3

REPORT INFORMATION
  Report Type: 
  Country: None (occurrence: None)
  Receive Date: 20080825
  Receipt Date: 20080429
  Transmission Date: 20090109
  Serious: No
  Sender: FDA-Public Use
  Company Number: A0725334A

PATIENT
  Sex: Male

DRUGS (1)
  1. BEXXAR [Suspect]
     Indication: LYMPHOMA
     Dates: start: 20080418

REACTIONS (8)
  - ARTHRALGIA [None]
  - BACK PAIN [None]
  - COUGH [None]
  - NASOPHARYNGITIS [None]
  - PAIN IN EXTREMITY [None]
  - PARAESTHESIA [None]
  - PRODUCTIVE COUGH [None]
  - PYREXIA [None]
